FAERS Safety Report 6038368-5 (Version None)
Quarter: 2009Q1

REPORT INFORMATION
  Report Type: 
  Country: None (occurrence: None)
  Receive Date: 20090115
  Receipt Date: 20081015
  Transmission Date: 20090719
  Serious: Yes (Other)
  Sender: FDA-Public Use
  Company Number: GB-ABBOTT-09P-167-0497479-00

PATIENT
  Age: 56 Year
  Sex: Female

DRUGS (3)
  1. ERYTHROPED A [Suspect]
     Indication: INFECTED BITES
     Route: 048
     Dates: start: 20080729, end: 20080731
  2. LORATADINE [Suspect]
     Indication: PRURITUS
  3. RANITIDINE [Suspect]
     Indication: PRURITUS

REACTIONS (11)
  - ALANINE AMINOTRANSFERASE INCREASED [None]
  - BURNING SENSATION [None]
  - CHOLESTASIS [None]
  - CHROMATURIA [None]
  - DYSGEUSIA [None]
  - FEELING ABNORMAL [None]
  - FOOD AVERSION [None]
  - JAUNDICE [None]
  - LIVER FUNCTION TEST ABNORMAL [None]
  - PRURITUS [None]
  - TONGUE DISCOLOURATION [None]
